FAERS Safety Report 4478053-4 (Version None)
Quarter: 2004Q3

REPORT INFORMATION
  Report Type: 
  Country: None (occurrence: None)
  Receive Date: 20040923
  Receipt Date: 20040802
  Transmission Date: 20050211
  Serious: No
  Sender: FDA-Public Use
  Company Number: USA040874341

PATIENT
  Age: 86 Year
  Sex: Female

DRUGS (17)
  1. FORTEO [Suspect]
     Indication: OSTEOPOROSIS
     Dates: start: 20040601
  2. EVISTA [Concomitant]
  3. TEMAZEPAM [Concomitant]
  4. SONATA [Concomitant]
  5. CALTRATE PLUS [Concomitant]
  6. ASPIRIN [Concomitant]
  7. METOPROLOL [Concomitant]
  8. SYNTHROID [Concomitant]
  9. AMIODARONE [Concomitant]
  10. ACIPHEX [Concomitant]
  11. FUROSEMIDE [Concomitant]
  12. SPIRONOLACTONE [Concomitant]
  13. DULCOLAX [Concomitant]
  14. VITAMIN CAP [Concomitant]
  15. PLETAL [Concomitant]
  16. COMBIVENT [Concomitant]
  17. MIRALAX [Concomitant]

REACTIONS (4)
  - BALANCE DISORDER [None]
  - DIZZINESS [None]
  - HOARSENESS [None]
  - INJECTION SITE HAEMORRHAGE [None]
